FAERS Safety Report 5572679-2 (Version None)
Quarter: 2007Q4

REPORT INFORMATION
  Report Type: 
  Country: None (occurrence: None)
  Receive Date: 20071222
  Receipt Date: 20071212
  Transmission Date: 20080405
  Serious: Yes (Other)
  Sender: FDA-Public Use
  Company Number: FR-PFIZER INC-2007106696

PATIENT
  Age: 53 Year
  Sex: Male

DRUGS (4)
  1. CHANTIX [Suspect]
  2. ZESTRIL [Concomitant]
  3. SPIRIVA [Concomitant]
  4. SERETIDE [Concomitant]

REACTIONS (2)
  - DERMATITIS [None]
  - TESTICULAR OEDEMA [None]
